FAERS Safety Report 17083305 (Version 1)
Quarter: 2019Q4

REPORT INFORMATION
  Report Type: Spontaneous
  Country: US (occurrence: US)
  Receive Date: 20191127
  Receipt Date: 20191127
  Transmission Date: 20200122
  Serious: Yes (Other)
  Sender: FDA-Public Use
  Company Number: US-SA-2019SA326331

PATIENT
  Age: 54 Year
  Sex: Female

DRUGS (2)
  1. ZYRTEC [Concomitant]
     Active Substance: CETIRIZINE HYDROCHLORIDE
  2. XYZAL ALLERGY 24HR [Suspect]
     Active Substance: LEVOCETIRIZINE DIHYDROCHLORIDE
     Indication: HYPERSENSITIVITY
     Dosage: 5 MG, UNK
     Route: 065

REACTIONS (7)
  - Swollen tongue [Unknown]
  - Anaphylactic shock [Unknown]
  - Dyspepsia [Unknown]
  - Swelling face [Unknown]
  - Diarrhoea [Unknown]
  - Oropharyngeal discomfort [Unknown]
  - Dysgeusia [Unknown]
